FAERS Safety Report 17979170 (Version 1)
Quarter: 2020Q3

REPORT INFORMATION
  Report Type: Spontaneous
  Country: FR (occurrence: FR)
  Receive Date: 20200703
  Receipt Date: 20200703
  Transmission Date: 20201103
  Serious: Yes (Death)
  Sender: FDA-Public Use
  Company Number: FR-TEVA-2020-FR-1794294

PATIENT
  Age: 71 Year
  Sex: Male
  Weight: 65 kg

DRUGS (3)
  1. METFORMINE ARROW 850 MG, COMPRIME PELLICULE [Suspect]
     Active Substance: METFORMIN HYDROCHLORIDE
     Indication: TYPE 2 DIABETES MELLITUS
     Dosage: 1 DOSAGE FORM
     Route: 048
     Dates: end: 20190715
  2. CEFAZOLINE MYLAN 2 G, POUDRE POUR SOLUTION INJECTABLE (IM?IV) [Concomitant]
     Active Substance: CEFAZOLIN SODIUM
     Indication: STAPHYLOCOCCAL SEPSIS
     Dosage: 1 DOSAGE FORM
     Route: 042
     Dates: start: 20190702, end: 20190715
  3. LEVOFLOXACINE ACCORD HEALTHCARE 500 MG, COMPRIME PELLICULE SECABLE [Concomitant]
     Indication: STAPHYLOCOCCAL SEPSIS
     Dosage: 1 DOSAGE FORM
     Route: 048
     Dates: start: 20190702, end: 20190715

REACTIONS (1)
  - Metabolic acidosis [Fatal]

NARRATIVE: CASE EVENT DATE: 20190715
